FAERS Safety Report 17606987 (Version 1)
Quarter: 2020Q1

REPORT INFORMATION
  Report Type: Spontaneous
  Country: DE (occurrence: DE)
  Receive Date: 20200331
  Receipt Date: 20200331
  Transmission Date: 20200409
  Serious: Yes (Congenital Anomaly, Other)
  Sender: FDA-Public Use
  Company Number: DE-DSJP-DSE-2020-110556

PATIENT

DRUGS (1)
  1. OLMESARTAN MEDOXOMIL. [Suspect]
     Active Substance: OLMESARTAN MEDOXOMIL
     Indication: PRODUCT USED FOR UNKNOWN INDICATION
     Dosage: MATERNAL DOSE:UNK
     Route: 064

REACTIONS (5)
  - Foetal disorder [Unknown]
  - Foetal exposure during pregnancy [Unknown]
  - Renal impairment neonatal [Unknown]
  - Premature baby [Unknown]
  - Pulmonary hypoplasia [Unknown]
